FAERS Safety Report 9728542 (Version 3)
Quarter: 2014Q1

REPORT INFORMATION
  Report Type: Report from Study
  Country: JP (occurrence: JP)
  Receive Date: 20131204
  Receipt Date: 20140128
  Transmission Date: 20141002
  Serious: Yes (Other)
  Sender: FDA-Public Use
  Company Number: JP-MERCK-1305JPN007889

PATIENT
  Age: 35 Year
  Sex: Female
  Weight: 58 kg

DRUGS (8)
  1. GANIRELIX ACETATE [Suspect]
     Indication: PREVENTION OF PREMATURE OVULATION
     Dosage: 0.25 MG, QD
     Route: 058
     Dates: start: 20120310, end: 20120311
  2. FOLLISTIM [Suspect]
     Indication: IN VITRO FERTILISATION
     Dosage: DOSE: 200(UNDER 1000UNIT), QD
     Route: 058
     Dates: start: 20120302, end: 20120304
  3. FOLLISTIM [Suspect]
     Dosage: DOSE: 225(UNDER 1000UNIT), QD
     Route: 058
     Dates: start: 20120305, end: 20120306
  4. MENOTROPINS [Concomitant]
     Indication: IN VITRO FERTILISATION
     Dosage: DOSE: 225(UNDER 1000UNIT), QD
     Route: 030
     Dates: start: 20120307, end: 20120311
  5. MENOTROPINS [Concomitant]
     Dosage: DOSE: 150(UNDER 1000UNIT), QD
     Route: 030
     Dates: start: 20120312, end: 20120312
  6. GONADOTROPIN, CHORIONIC [Concomitant]
     Indication: OVULATION INDUCTION
     Dosage: DOSE: 5(THOUSAND MILLION UNIT),QD
     Route: 030
     Dates: start: 20120312, end: 20120312
  7. PROGESTON [Concomitant]
     Indication: IN VITRO FERTILISATION
     Dosage: 50 MG, QD
     Route: 030
     Dates: start: 20120316, end: 20120405
  8. ESTRANA [Concomitant]
     Indication: IN VITRO FERTILISATION
     Dosage: FORMULATION: TAP, TWO PIECES ON ALTERNATIVE DAYS.
     Route: 062
     Dates: start: 20120319, end: 20120327

REACTIONS (2)
  - Abortion [Recovered/Resolved]
  - Maternal exposure during pregnancy [Recovered/Resolved]
